FAERS Safety Report 6461889-8 (Version None)
Quarter: 2009Q4

REPORT INFORMATION
  Report Type: 
  Country: None (occurrence: None)
  Receive Date: 20091130
  Receipt Date: 20091123
  Transmission Date: 20100525
  Serious: Yes (Death, Other)
  Sender: FDA-Public Use
  Company Number: PHHY2009US51531

PATIENT
  Age: 37 Year
  Sex: Male

DRUGS (7)
  1. CYCLOSPORINE [Suspect]
     Indication: RENAL TRANSPLANT
     Dosage: UNK
     Dates: start: 19880701
  2. CYCLOSPORINE [Suspect]
     Indication: IMMUNOSUPPRESSION
  3. AZATHIOPRINE [Suspect]
     Indication: IMMUNOSUPPRESSION
  4. AZATHIOPRINE [Suspect]
     Indication: RENAL TRANSPLANT
  5. PREDNISONE [Suspect]
     Indication: IMMUNOSUPPRESSION
     Dosage: UNK
  6. PREDNISONE [Suspect]
     Indication: RENAL TRANSPLANT
  7. CORTICOSTEROIDS [Concomitant]

REACTIONS (5)
  - CARDIAC FAILURE [None]
  - ENTEROBACTER BACTERAEMIA [None]
  - ISCHAEMIC CARDIOMYOPATHY [None]
  - KIDNEY TRANSPLANT REJECTION [None]
  - PNEUMONIA CYTOMEGALOVIRAL [None]
